FAERS Safety Report 8519758-5 (Version None)
Quarter: 2012Q3

REPORT INFORMATION
  Report Type: 
  Country: None (occurrence: None)
  Receive Date: 20120719
  Receipt Date: 20120709
  Transmission Date: 20120928
  Serious: No
  Sender: FDA-Public Use
  Company Number: US-BIOGENIDEC-2012BI012209

PATIENT
  Sex: Male

DRUGS (1)
  1. TYSABRI [Suspect]
     Indication: MULTIPLE SCLEROSIS
     Route: 042
     Dates: start: 20110929

REACTIONS (9)
  - MUSCLE SPASMS [None]
  - MUSCLE SPASTICITY [None]
  - MULTIPLE SCLEROSIS [None]
  - FALL [None]
  - BALANCE DISORDER [None]
  - MYALGIA [None]
  - PAIN IN EXTREMITY [None]
  - STRESS [None]
  - ARTHRALGIA [None]
